FAERS Safety Report 25305959 (Version 1)
Quarter: 2025Q2

REPORT INFORMATION
  Report Type: Spontaneous
  Country: US (occurrence: US)
  Receive Date: 20250513
  Receipt Date: 20250513
  Transmission Date: 20250717
  Serious: No
  Sender: UCB
  Company Number: US-UCBSA-2024020445

PATIENT
  Sex: Female

DRUGS (3)
  1. CIMZIA [Suspect]
     Active Substance: CERTOLIZUMAB PEGOL
     Indication: Rheumatoid arthritis
     Dosage: 200 MILLIGRAM, EV 2 WEEKS(QOW)
     Route: 058
     Dates: start: 2021
  2. ENBREL [Concomitant]
     Active Substance: ETANERCEPT
     Indication: Product used for unknown indication
  3. HUMIRA [Concomitant]
     Active Substance: ADALIMUMAB
     Indication: Product used for unknown indication

REACTIONS (1)
  - Therapeutic response shortened [Unknown]
